FAERS Safety Report 24797691 (Version 1)
Quarter: 2025Q1

REPORT INFORMATION
  Report Type: Spontaneous
  Country: CA (occurrence: CA)
  Receive Date: 20250102
  Receipt Date: 20250102
  Transmission Date: 20250409
  Serious: Yes (Other)
  Sender: TEVA
  Company Number: CA-TEVA-VS-3282040

PATIENT
  Age: 48 Year
  Sex: Female
  Weight: 90 kg

DRUGS (4)
  1. METHOTREXATE SODIUM [Suspect]
     Active Substance: METHOTREXATE SODIUM
     Indication: Product used for unknown indication
     Route: 065
  2. PREDNISONE [Concomitant]
     Active Substance: PREDNISONE
     Indication: Product used for unknown indication
  3. HYDROXYCHLOROQUINE [Concomitant]
     Active Substance: HYDROXYCHLOROQUINE
     Indication: Product used for unknown indication
  4. ORENCIA [Concomitant]
     Active Substance: ABATACEPT
     Indication: Product used for unknown indication

REACTIONS (3)
  - Cerebrovascular accident [Unknown]
  - Pulmonary mass [Unknown]
  - Shoulder operation [Unknown]
